FAERS Safety Report 19945264 (Version 1)
Quarter: 2021Q4

REPORT INFORMATION
  Report Type: Spontaneous
  Country: CN (occurrence: CN)
  Receive Date: 20211011
  Receipt Date: 20211011
  Transmission Date: 20220303
  Serious: Yes (Other)
  Sender: FDA-Public Use
  Company Number: CN-BAXTER-2021BAX028634

PATIENT
  Age: 54 Year
  Sex: Female
  Weight: 56 kg

DRUGS (8)
  1. CYCLOPHOSPHAMIDE [Suspect]
     Active Substance: CYCLOPHOSPHAMIDE
     Indication: Breast cancer female
     Dosage: INTRA-PUMP INJECTION; CYCLOPHOSPHAMIDE 0.8G + NS 30ML;
     Route: 050
     Dates: start: 20200624, end: 20200624
  2. CYCLOPHOSPHAMIDE [Suspect]
     Active Substance: CYCLOPHOSPHAMIDE
     Dosage: INTRA-PUMP INJECTION; DOSE RE-INTRODUCED
     Route: 050
  3. SODIUM CHLORIDE [Suspect]
     Active Substance: SODIUM CHLORIDE
     Indication: Medication dilution
     Dosage: INTRA-PUMP; DILUENT FOR CYCLOPHOSPHAMIDE.
     Route: 050
     Dates: start: 20200624, end: 20200624
  4. SODIUM CHLORIDE [Suspect]
     Active Substance: SODIUM CHLORIDE
     Dosage: DOSE REINTRODUCED WITH CYCLOPHOSPHAMIDE
     Route: 050
  5. DEXTROSE [Suspect]
     Active Substance: DEXTROSE
     Indication: Medication dilution
     Dosage: EPIRUBICIN 130MG + 5% NS 500ML
     Route: 041
     Dates: start: 20200624, end: 20200624
  6. DEXTROSE [Suspect]
     Active Substance: DEXTROSE
     Dosage: DOSE REINTRODUCED WITH EPIRUBICIN
     Route: 041
  7. EPIRUBICIN [Suspect]
     Active Substance: EPIRUBICIN
     Indication: Breast cancer female
     Route: 041
     Dates: start: 20200624, end: 20200624
  8. EPIRUBICIN [Suspect]
     Active Substance: EPIRUBICIN
     Dosage: DOSE RE-INTRODUCED
     Route: 041

REACTIONS (3)
  - Leukopenia [Not Recovered/Not Resolved]
  - Anaemia [Not Recovered/Not Resolved]
  - Nausea [Not Recovered/Not Resolved]

NARRATIVE: CASE EVENT DATE: 20200626
